FAERS Safety Report 20641921 (Version 14)
Quarter: 2022Q4

REPORT INFORMATION
  Report Type: Report from Study
  Country: CN (occurrence: CN)
  Receive Date: 20220328
  Receipt Date: 20221117
  Transmission Date: 20230113
  Serious: Yes (Hospitalization)
  Sender: FDA-Public Use
  Company Number: CN-HBP-2022CN025363

PATIENT

DRUGS (2)
  1. INFIGRATINIB [Suspect]
     Active Substance: INFIGRATINIB
     Indication: Cholangiocarcinoma
     Dosage: 125 MILLIGRAM, QD
     Dates: start: 20220114, end: 20220203
  2. INFIGRATINIB [Suspect]
     Active Substance: INFIGRATINIB
     Dosage: 125 MILLIGRAM, QD
     Dates: start: 20220223, end: 20220309

REACTIONS (1)
  - Liver injury [Not Recovered/Not Resolved]

NARRATIVE: CASE EVENT DATE: 20220309
